FAERS Safety Report 13849104 (Version 1)
Quarter: 2017Q3

REPORT INFORMATION
  Report Type: Spontaneous
  Country: US (occurrence: US)
  Receive Date: 20170809
  Receipt Date: 20170809
  Transmission Date: 20171127
  Serious: Yes (Hospitalization)
  Sender: FDA-Public Use
  Company Number: None

PATIENT
  Age: 58 Year
  Sex: Male

DRUGS (5)
  1. LOSARTAN. [Concomitant]
     Active Substance: LOSARTAN
  2. BASAGLAR [Concomitant]
     Active Substance: INSULIN GLARGINE
  3. VITAMIN D [Concomitant]
     Active Substance: CHOLECALCIFEROL
  4. POTASSIUM [Concomitant]
     Active Substance: POTASSIUM
  5. NEULASTA [Suspect]
     Active Substance: PEGFILGRASTIM
     Indication: PANCREATIC CARCINOMA
     Route: 058
     Dates: start: 20170609

REACTIONS (1)
  - Cardiac operation [None]
